FAERS Safety Report 10178139 (Version 1)
Quarter: 2014Q2

REPORT INFORMATION
  Report Type: Report from Study
  Country: FR (occurrence: FR)
  Receive Date: 20140519
  Receipt Date: 20140519
  Transmission Date: 20141212
  Serious: Yes (Hospitalization)
  Sender: FDA-Public Use
  Company Number: FR-ROCHE-1402384

PATIENT
  Sex: Female

DRUGS (10)
  1. RITUXIMAB [Suspect]
     Indication: RHEUMATOID ARTHRITIS
     Route: 041
     Dates: start: 20080321
  2. RITUXIMAB [Suspect]
     Route: 041
     Dates: start: 20080404
  3. RITUXIMAB [Suspect]
     Route: 041
     Dates: start: 20091123
  4. RITUXIMAB [Suspect]
     Route: 041
     Dates: start: 20091207
  5. RITUXIMAB [Suspect]
     Route: 041
     Dates: start: 20110224
  6. RITUXIMAB [Suspect]
     Route: 041
     Dates: start: 20110311
  7. RITUXIMAB [Suspect]
     Route: 041
     Dates: start: 20121203
  8. RITUXIMAB [Suspect]
     Route: 041
     Dates: start: 20121218
  9. METHOTREXATE [Concomitant]
     Route: 065
  10. METHOTREXATE [Concomitant]
     Route: 065

REACTIONS (3)
  - Arthropathy [Recovered/Resolved]
  - Asthenia [Recovered/Resolved]
  - Vitreous detachment [Recovered/Resolved]
